FAERS Safety Report 6449866-4 (Version None)
Quarter: 2009Q4

REPORT INFORMATION
  Report Type: 
  Country: None (occurrence: None)
  Receive Date: 20091123
  Receipt Date: 20091113
  Transmission Date: 20100525
  Serious: Yes (Other)
  Sender: FDA-Public Use
  Company Number: CHPA2009US21848

PATIENT
  Age: 55 Year
  Sex: Female
  Weight: 47.619 kg

DRUGS (3)
  1. PRIVATE LABEL (NCH) [Suspect]
     Indication: SMOKING CESSATION THERAPY
     Dosage: 7 MG, QD
     Route: 062
     Dates: end: 20091108
  2. PRIVATE LABEL (NCH) [Suspect]
     Dosage: 14 MG, QD
     Route: 062
  3. PRIVATE LABEL (NCH) [Suspect]
     Dosage: 21 MG, QD
     Route: 062
     Dates: start: 20090904

REACTIONS (5)
  - INTENTIONAL DRUG MISUSE [None]
  - OVERDOSE [None]
  - PNEUMONIA [None]
  - STRESS [None]
  - TREATMENT NONCOMPLIANCE [None]
